FAERS Safety Report 21414971 (Version 1)
Quarter: 2022Q4

REPORT INFORMATION
  Report Type: Spontaneous
  Country: FR (occurrence: FR)
  Receive Date: 20221006
  Receipt Date: 20221006
  Transmission Date: 20230112
  Serious: Yes (Disabling)
  Sender: FDA-Public Use
  Company Number: FR-SUN PHARMACEUTICAL INDUSTRIES LTD-2022RR-357626

PATIENT
  Age: 34 Year
  Sex: Male
  Weight: 68 kg

DRUGS (12)
  1. GABAPENTIN [Suspect]
     Active Substance: GABAPENTIN
     Indication: Neuralgia
     Dosage: 1600 MILLIGRAM, 400MG MORNING, 600MG NOON AND EVENING
     Route: 048
     Dates: end: 202204
  2. GABAPENTIN [Suspect]
     Active Substance: GABAPENTIN
     Dosage: 900MG X3/JOUR
     Route: 048
     Dates: start: 202204, end: 202206
  3. GABAPENTIN [Suspect]
     Active Substance: GABAPENTIN
     Dosage: 900MG MATIN, 400MG MIDI ET 900MG SOIR
     Route: 048
     Dates: start: 202207
  4. ULTOMIRIS [Suspect]
     Active Substance: RAVULIZUMAB-CWVZ
     Indication: Paroxysmal nocturnal haemoglobinuria
     Dosage: 3300 MILLIGRAM, 3300MG OVER 40 MINS
     Route: 040
     Dates: start: 20220721, end: 20220721
  5. ULTOMIRIS [Suspect]
     Active Substance: RAVULIZUMAB-CWVZ
     Dosage: 1ERE CURE 2700MG SUR 35 MIN (DOSE DE CHARGE)
     Route: 065
     Dates: start: 20220705, end: 20220705
  6. DOMPERIDONE [Concomitant]
     Active Substance: DOMPERIDONE
     Indication: Nausea
     Dosage: 10 MILLIGRAM, 10MG X3/DAY IF NAUSEA
     Route: 048
  7. LYRICA [Concomitant]
     Active Substance: PREGABALIN
     Indication: Neuralgia
     Dosage: 50 MILLIGRAM, 25MG MORNING AND EVENING
     Route: 048
  8. SKENAN [Concomitant]
     Active Substance: MORPHINE SULFATE
     Indication: Neuralgia
     Dosage: 60 MILLIGRAM
     Route: 048
  9. FOLIC ACID [Concomitant]
     Active Substance: FOLIC ACID
     Indication: Vitamin supplementation
     Dosage: 1 DOSAGE FORM
     Route: 048
     Dates: start: 202205
  10. MORPHINE SULFATE [Concomitant]
     Active Substance: MORPHINE SULFATE
     Indication: Neuralgia
     Dosage: 10 MILLIGRAM, Q4H, 10MG EVERY 4 HOURS
     Route: 048
  11. XANAX [Concomitant]
     Active Substance: ALPRAZOLAM
     Indication: Anxiety
     Dosage: 1.5 MILLIGRAM, 0.5MG X3/DAY
     Route: 048
  12. VITAMINE B1 B6 BAYER, comprime pellicule [Concomitant]
     Indication: Vitamin supplementation
     Dosage: 1 DOSAGE FORM
     Route: 048
     Dates: start: 202205

REACTIONS (1)
  - Pain [Not Recovered/Not Resolved]
